FAERS Safety Report 4691412-X (Version None)
Quarter: 2005Q2

REPORT INFORMATION
  Report Type: 
  Country: None (occurrence: None)
  Receive Date: 20050615
  Receipt Date: 20050601
  Transmission Date: 20051028
  Serious: Yes (Other)
  Sender: FDA-Public Use
  Company Number: 2005082896

PATIENT
  Age: 75 Month
  Sex: Male
  Weight: 136.0791 kg

DRUGS (4)
  1. LIPITOR [Suspect]
     Indication: BLOOD CHOLESTEROL INCREASED
     Dosage: 10 MG(110 MG, 1 IN 1 D ), ORAL
     Route: 048
     Dates: end: 20050101
  2. ACTOS [Concomitant]
  3. PRANDIN [Concomitant]
  4. GLUCOPHAGE [Concomitant]

REACTIONS (6)
  - ARTHRALGIA [None]
  - FALL [None]
  - HAEMOGLOBIN DECREASED [None]
  - MOVEMENT DISORDER [None]
  - MUSCULAR WEAKNESS [None]
  - MYALGIA [None]
